FAERS Safety Report 20487061 (Version 3)
Quarter: 2023Q2

REPORT INFORMATION
  Report Type: Report from Study
  Country: JP (occurrence: JP)
  Receive Date: 20220217
  Receipt Date: 20230614
  Transmission Date: 20230721
  Serious: Yes (Hospitalization, Other)
  Sender: FDA-Public Use
  Company Number: JP-CELLTRION INC.-2020JP024514

PATIENT

DRUGS (10)
  1. INFLIXIMAB-DYYB [Suspect]
     Active Substance: INFLIXIMAB-DYYB
     Indication: Colitis ulcerative
     Dosage: 390 MILLIGRAM (77.7 KG)
     Route: 041
     Dates: start: 20181025, end: 20181025
  2. INFLIXIMAB-DYYB [Suspect]
     Active Substance: INFLIXIMAB-DYYB
     Dosage: 390 MG (WEIGHT: 78.2 KG)
     Route: 041
     Dates: start: 20181210, end: 20181210
  3. INFLIXIMAB-DYYB [Suspect]
     Active Substance: INFLIXIMAB-DYYB
     Dosage: 400 MG (WEIGHT: 80.8 KG)
     Route: 041
     Dates: start: 20190204, end: 20190204
  4. INFLIXIMAB-DYYB [Suspect]
     Active Substance: INFLIXIMAB-DYYB
     Dosage: 385 MG (WEIGHT: 76.5 KG)
     Route: 041
     Dates: start: 20190404, end: 20190404
  5. INFLIXIMAB-DYYB [Suspect]
     Active Substance: INFLIXIMAB-DYYB
     Dosage: 360 MILLIGRAM (73 KG)
     Route: 041
     Dates: start: 20191125, end: 20191125
  6. INFLIXIMAB-DYYB [Suspect]
     Active Substance: INFLIXIMAB-DYYB
     Dosage: 375 MG (WEIGHT: 74.6 KG)
     Route: 041
     Dates: start: 20201029, end: 20201029
  7. INFLIXIMAB-DYYB [Suspect]
     Active Substance: INFLIXIMAB-DYYB
     Dosage: 390 MG (WEIGHT: 77.8 KG)
     Route: 041
     Dates: start: 20211011, end: 20211011
  8. INFLIXIMAB-DYYB [Suspect]
     Active Substance: INFLIXIMAB-DYYB
     Dosage: 380 MG (WEIGHT: 78.0 KG)
     Route: 041
     Dates: start: 20221117, end: 20221117
  9. AZATHIOPRINE [Concomitant]
     Active Substance: AZATHIOPRINE
     Dosage: 125 MILLIGRAM, QD
     Route: 048
  10. MESALAMINE [Concomitant]
     Active Substance: MESALAMINE
     Dosage: 3600 MILLIGRAM, QD
     Route: 048

REACTIONS (14)
  - Large intestine polyp [Recovered/Resolved]
  - Spinal stenosis [Recovered/Resolved]
  - COVID-19 [Recovered/Resolved]
  - Chronic gastritis [Not Recovered/Not Resolved]
  - Hyperlipidaemia [Not Recovered/Not Resolved]
  - Productive cough [Recovered/Resolved]
  - Tonsillitis [Recovered/Resolved]
  - Rash [Unknown]
  - Rash [Not Recovered/Not Resolved]
  - Gastrooesophageal reflux disease [Not Recovered/Not Resolved]
  - Back pain [Recovered/Resolved]
  - Overdose [Unknown]
  - Underdose [Unknown]
  - Intentional product use issue [Unknown]

NARRATIVE: CASE EVENT DATE: 20181105
